FAERS Safety Report 24082056 (Version 1)
Quarter: 2024Q3

REPORT INFORMATION
  Report Type: Spontaneous
  Country: AU (occurrence: AU)
  Receive Date: 20240712
  Receipt Date: 20240712
  Transmission Date: 20241016
  Serious: Yes (Other)
  Sender: INVENTIA HEALTHCARE
  Company Number: AU-IHL-000590

PATIENT
  Age: 52 Year
  Sex: Female

DRUGS (3)
  1. Truvada/Kaletra [Concomitant]
     Indication: Human bite
     Route: 065
  2. VALPROATE [Concomitant]
     Active Substance: VALPROIC ACID
     Indication: Mental disorder
     Route: 065
  3. VENLAFAXINE HYDROCHLORIDE [Suspect]
     Active Substance: VENLAFAXINE HYDROCHLORIDE
     Indication: Antidepressant therapy
     Route: 065

REACTIONS (1)
  - Multiple acyl-coenzyme A dehydrogenase deficiency [Unknown]
